FAERS Safety Report 4895076-1 (Version None)
Quarter: 2006Q1

REPORT INFORMATION
  Report Type: 
  Country: None (occurrence: None)
  Receive Date: 20060130
  Receipt Date: 20060104
  Transmission Date: 20060701
  Serious: Yes (Disabling, Other)
  Sender: FDA-Public Use
  Company Number: PHNR2006AU00450

PATIENT
  Age: 49 Year
  Sex: Female

DRUGS (4)
  1. NEORAL [Suspect]
     Indication: APLASTIC ANAEMIA
     Dosage: 400 MG, BID
     Dates: start: 19900101
  2. OROXINE [Concomitant]
     Dosage: 50 UG, QD
  3. BACLOFEN [Concomitant]
     Dosage: 25 MG, TID
  4. MYSOLINE [Concomitant]
     Dosage: 750 MG, QD

REACTIONS (20)
  - ASTHENIA [None]
  - BLADDER DISORDER [None]
  - DYSARTHRIA [None]
  - EXTENSOR PLANTAR RESPONSE [None]
  - GASTROINTESTINAL DISORDER [None]
  - HAEMOCHROMATOSIS [None]
  - HEADACHE [None]
  - HYPERTONIA [None]
  - HYPOAESTHESIA [None]
  - HYPOKINESIA [None]
  - MUSCLE SPASMS [None]
  - MUSCLE SPASTICITY [None]
  - MUSCULOSKELETAL STIFFNESS [None]
  - MYELOPATHY [None]
  - NOCTURIA [None]
  - NUCLEAR MAGNETIC RESONANCE IMAGING NORMAL [None]
  - REFLEXES ABNORMAL [None]
  - SENSORY LOSS [None]
  - SHOULDER PAIN [None]
  - VENIPUNCTURE [None]
